FAERS Safety Report 23997078 (Version 1)
Quarter: 2024Q2

REPORT INFORMATION
  Report Type: Spontaneous
  Country: JP (occurrence: JP)
  Receive Date: 20240621
  Receipt Date: 20240621
  Transmission Date: 20240715
  Serious: Yes (Other)
  Sender: FDA-Public Use
  Company Number: JP-STRIDES ARCOLAB LIMITED-2024SP007105

PATIENT

DRUGS (2)
  1. CYCLOSPORINE [Suspect]
     Active Substance: CYCLOSPORINE
     Indication: Haemophagocytic lymphohistiocytosis
     Dosage: UNK, (A COURSE)
     Route: 065
  2. DEXAMETHASONE [Suspect]
     Active Substance: DEXAMETHASONE
     Indication: Haemophagocytic lymphohistiocytosis
     Dosage: UNK
     Route: 065

REACTIONS (9)
  - Hypoxia [Unknown]
  - Bradycardia [Unknown]
  - Hypotension [Unknown]
  - Obesity [Unknown]
  - Sleep apnoea syndrome [Unknown]
  - Hypoprothrombinaemia [Unknown]
  - Vitamin K deficiency [Unknown]
  - Constipation [Unknown]
  - Off label use [Unknown]
